FAERS Safety Report 25761606 (Version 1)
Quarter: 2025Q3

REPORT INFORMATION
  Report Type: Spontaneous
  Country: EU (occurrence: EU)
  Receive Date: 20250904
  Receipt Date: 20250904
  Transmission Date: 20251021
  Serious: Yes (Hospitalization, Other)
  Sender: NOVARTIS
  Company Number: EU-002147023-NVSC2025AT115904

PATIENT
  Age: 30 Day
  Sex: Male
  Weight: 4.27 kg

DRUGS (4)
  1. ZOLGENSMA [Suspect]
     Active Substance: ONASEMNOGENE ABEPARVOVEC-XIOI
     Indication: Spinal muscular atrophy
     Route: 042
     Dates: start: 20250620, end: 20250620
  2. EVRYSDI [Concomitant]
     Active Substance: RISDIPLAM
     Indication: Spinal muscular atrophy
     Route: 048
     Dates: start: 20250606
  3. EVRYSDI [Concomitant]
     Active Substance: RISDIPLAM
     Route: 048
     Dates: end: 20250619
  4. NEXIUM [Concomitant]
     Active Substance: ESOMEPRAZOLE MAGNESIUM
     Indication: Spinal muscular atrophy
     Route: 048
     Dates: start: 20250619

REACTIONS (3)
  - Anaemia [Recovered/Resolved]
  - Thrombocytopenia [Recovered/Resolved]
  - Thrombocytopenia [Recovered/Resolved]

NARRATIVE: CASE EVENT DATE: 20250627
